FAERS Safety Report 14802460 (Version 2)
Quarter: 2018Q2

REPORT INFORMATION
  Report Type: Spontaneous
  Country: US (occurrence: US)
  Receive Date: 20180424
  Receipt Date: 20180521
  Transmission Date: 20180711
  Serious: Yes (Disabling, Other)
  Sender: FDA-Public Use
  Company Number: US-REGENERON PHARMACEUTICALS, INC.-2018-17417

PATIENT

DRUGS (9)
  1. EYLEA [Suspect]
     Active Substance: AFLIBERCEPT
     Dosage: OS, 2 MG, EVERY 6 WEEKS
     Route: 031
     Dates: start: 20170420, end: 20170420
  2. ACYCLOVIR                          /00587301/ [Concomitant]
     Active Substance: ACYCLOVIR
     Indication: PRODUCT USED FOR UNKNOWN INDICATION
     Dosage: 400 MG, UNK
  3. LUMIGAN [Concomitant]
     Active Substance: BIMATOPROST
     Indication: PRODUCT USED FOR UNKNOWN INDICATION
  4. MURO 128 [Concomitant]
     Active Substance: SODIUM CHLORIDE
     Indication: PRODUCT USED FOR UNKNOWN INDICATION
  5. EYLEA [Suspect]
     Active Substance: AFLIBERCEPT
     Dosage: OS 2 MG, LAST DOSE
     Route: 031
     Dates: start: 20170831, end: 20170831
  6. EYLEA [Suspect]
     Active Substance: AFLIBERCEPT
     Indication: NEOVASCULAR AGE-RELATED MACULAR DEGENERATION
     Dosage: OS, 2 MG, EVERY 6 WEEKS
     Route: 031
     Dates: start: 20170105
  7. EYLEA [Suspect]
     Active Substance: AFLIBERCEPT
     Dosage: OS, 2 MG, EVERY 6 WEEKS
     Route: 031
     Dates: start: 20170209, end: 20170209
  8. MOXIFLOXACIN. [Concomitant]
     Active Substance: MOXIFLOXACIN
     Indication: PRODUCT USED FOR UNKNOWN INDICATION
  9. DORZOLAMIDE [Concomitant]
     Active Substance: DORZOLAMIDE
     Indication: PRODUCT USED FOR UNKNOWN INDICATION

REACTIONS (3)
  - Blindness transient [Recovered/Resolved]
  - Eye inflammation [Recovered/Resolved]
  - Endophthalmitis [Recovered/Resolved]

NARRATIVE: CASE EVENT DATE: 20170123
